FAERS Safety Report 14381970 (Version 1)
Quarter: 2018Q1

REPORT INFORMATION
  Report Type: Spontaneous
  Country: TR (occurrence: TR)
  Receive Date: 20180112
  Receipt Date: 20180112
  Transmission Date: 20180509
  Serious: Yes (Other)
  Sender: FDA-Public Use
  Company Number: TR-SA-2018SA006294

PATIENT
  Age: 61 Year
  Sex: Male
  Weight: 64 kg

DRUGS (3)
  1. ELOXATIN [Suspect]
     Active Substance: OXALIPLATIN
     Route: 042
     Dates: start: 20171215, end: 20171215
  2. DEKORT [Concomitant]
     Active Substance: DEXAMETHASONE
     Dosage: AMPULE
     Route: 065
  3. AVIL [Concomitant]
     Active Substance: PHENIRAMINE
     Dosage: AMPULE
     Route: 065

REACTIONS (2)
  - Speech disorder [Recovered/Resolved]
  - Hypoaesthesia oral [Recovered/Resolved]

NARRATIVE: CASE EVENT DATE: 20171215
